FAERS Safety Report 22180431 (Version 1)
Quarter: 2023Q2

REPORT INFORMATION
  Report Type: Spontaneous
  Country: NZ (occurrence: NZ)
  Receive Date: 20230406
  Receipt Date: 20230406
  Transmission Date: 20230721
  Serious: Yes (Death, Other)
  Sender: FDA-Public Use
  Company Number: NZ-MYLANLABS-2023M1035563

PATIENT
  Sex: Male

DRUGS (4)
  1. CLOZARIL [Suspect]
     Active Substance: CLOZAPINE
     Indication: Schizophrenia
     Dosage: UNK
     Route: 048
     Dates: start: 20081212, end: 20230301
  2. EPILIM [Concomitant]
     Active Substance: VALPROATE SODIUM
     Dosage: UNK (EC 1500)
     Route: 065
  3. Laxol [Concomitant]
     Dosage: 2 DOSAGE FORM, QD (2 NOCTE)
     Route: 065
  4. AMISULPRIDE [Concomitant]
     Active Substance: AMISULPRIDE
     Dosage: 50 MILLIGRAM, QD (NOCTE)
     Route: 065

REACTIONS (5)
  - Death [Fatal]
  - Chronic kidney disease [Unknown]
  - Sepsis [Unknown]
  - Diabetes mellitus [Unknown]
  - Asthenia [Unknown]
